FAERS Safety Report 17920305 (Version 1)
Quarter: 2020Q2

REPORT INFORMATION
  Report Type: Spontaneous
  Country: IT (occurrence: IT)
  Receive Date: 20200620
  Receipt Date: 20200620
  Transmission Date: 20200714
  Serious: Yes (Other)
  Sender: FDA-Public Use
  Company Number: IT-AMGEN-ITANI2020096561

PATIENT
  Age: 40 Year
  Sex: Female
  Weight: 79 kg

DRUGS (5)
  1. ELLENCE [Suspect]
     Active Substance: EPIRUBICIN HYDROCHLORIDE
     Indication: BREAST CANCER
     Dosage: 138 MILLIGRAM, Q3WK
     Route: 042
     Dates: start: 20190308
  2. TRASTUZUMAB. [Suspect]
     Active Substance: TRASTUZUMAB
     Indication: BREAST CANCER
     Dosage: 4 MILLIGRAM/KILOGRAM
     Route: 042
     Dates: start: 20190612
  3. TAMOXIFENE [TAMOXIFEN] [Concomitant]
     Active Substance: TAMOXIFEN
     Dosage: UNK
     Dates: start: 20191111
  4. CYTOXAN [Suspect]
     Active Substance: CYCLOPHOSPHAMIDE
     Indication: BREAST CANCER
     Dosage: 926 MILLIGRAM, Q3WK
     Route: 042
     Dates: start: 20190308
  5. TAXOL [Suspect]
     Active Substance: PACLITAXEL
     Indication: BREAST CANCER
     Dosage: 80 MILLIGRAM/SQ. METER, QWK
     Route: 042
     Dates: start: 20190612

REACTIONS (1)
  - Pneumonia [Recovered/Resolved]

NARRATIVE: CASE EVENT DATE: 20200126
